FAERS Safety Report 4951799-7 (Version None)
Quarter: 2006Q1

REPORT INFORMATION
  Report Type: 
  Country: None (occurrence: None)
  Receive Date: 20060322
  Receipt Date: 20060322
  Transmission Date: 20060701
  Serious: Yes (Other)
  Sender: FDA-Public Use
  Company Number: None

PATIENT
  Sex: Female

DRUGS (4)
  1. OXYCODONE SA 80M 20 MG [Suspect]
     Indication: COMPLEX REGIONAL PAIN SYNDROME
     Dosage: ONE Q 8H (80 MG ) Q 8H PO
     Route: 048
     Dates: start: 20051101
  2. KADIAN [Suspect]
     Indication: COMPLEX REGIONAL PAIN SYNDROME
     Dosage: 100 MG Q12H PO
     Route: 048
     Dates: start: 20000808
  3. MORPHINE SULFATE [Suspect]
     Indication: COMPLEX REGIONAL PAIN SYNDROME
     Dosage: 100 MG Q12H PO
     Route: 048
     Dates: start: 20060217, end: 20060310
  4. MORPHINE SULFATE [Suspect]
     Indication: PELVIC PAIN
     Dosage: 100 MG Q12H PO
     Route: 048
     Dates: start: 20060217, end: 20060310

REACTIONS (6)
  - DIZZINESS [None]
  - MOOD SWINGS [None]
  - NAUSEA [None]
  - PHARMACEUTICAL PRODUCT COMPLAINT [None]
  - SOMNOLENCE [None]
  - VOMITING [None]
